FAERS Safety Report 6238798-2 (Version None)
Quarter: 2009Q2

REPORT INFORMATION
  Report Type: 
  Country: None (occurrence: None)
  Receive Date: 20090622
  Receipt Date: 20090616
  Transmission Date: 20091009
  Serious: Yes (Hospitalization)
  Sender: FDA-Public Use
  Company Number: JP-WATSON-2009-04517

PATIENT
  Age: 43 Year
  Sex: Female

DRUGS (2)
  1. METHYLPREDNISOLONE ACETATE [Suspect]
     Indication: MULTIPLE SCLEROSIS
     Dosage: 1000 MG/D X3D
     Dates: start: 20060601, end: 20060701
  2. INTERFERON BETA [Suspect]
     Indication: MULTIPLE SCLEROSIS
     Dosage: 8 MU EVERY OTHER DAY
     Dates: start: 20060711, end: 20060726

REACTIONS (1)
  - AUTOIMMUNE HEPATITIS [None]
